FAERS Safety Report 23340899 (Version 1)
Quarter: 2023Q4

REPORT INFORMATION
  Report Type: Spontaneous
  Country: US (occurrence: US)
  Receive Date: 20231227
  Receipt Date: 20231227
  Transmission Date: 20240110
  Serious: No
  Sender: FDA-Public Use
  Company Number: US-RECORDATI RARE DISEASE INC.-2023008589

PATIENT

DRUGS (2)
  1. SIGNIFOR LAR [Suspect]
     Active Substance: PASIREOTIDE PAMOATE
     Indication: Pituitary tumour
     Dosage: 60 MG, QM
     Route: 065
     Dates: start: 20230821, end: 2023
  2. SIGNIFOR LAR [Suspect]
     Active Substance: PASIREOTIDE PAMOATE
     Dosage: 60 MG, QM
     Route: 065
     Dates: start: 2023

REACTIONS (3)
  - Glycosylated haemoglobin increased [Not Recovered/Not Resolved]
  - Glucose tolerance impaired [Not Recovered/Not Resolved]
  - Fatigue [Not Recovered/Not Resolved]

NARRATIVE: CASE EVENT DATE: 20230821
